FAERS Safety Report 4352655-8 (Version None)
Quarter: 2004Q2

REPORT INFORMATION
  Report Type: 
  Country: None (occurrence: None)
  Receive Date: 20040429
  Receipt Date: 20040416
  Transmission Date: 20050107
  Serious: Yes (Life-Threatening)
  Sender: FDA-Public Use
  Company Number: 02100-JPN-04-0112

PATIENT
  Age: 80 Year
  Sex: Female

DRUGS (3)
  1. CILOSTAZOL [Suspect]
     Indication: CEREBRAL ARTERY OCCLUSION
     Dosage: 200 MG ORAL
     Route: 048
     Dates: start: 20040406, end: 20040412
  2. ATORVASTATIN CALCIUM [Concomitant]
  3. AMLODIPINE BESYLATE [Concomitant]

REACTIONS (8)
  - CARDIAC FAILURE [None]
  - CARDIOMEGALY [None]
  - CHEST X-RAY ABNORMAL [None]
  - DIFFICULTY IN WALKING [None]
  - HEPATIC FUNCTION ABNORMAL [None]
  - OEDEMA [None]
  - PALPITATIONS [None]
  - PROTEINURIA [None]
